FAERS Safety Report 10380981 (Version 1)
Quarter: 2014Q3

REPORT INFORMATION
  Report Type: Spontaneous
  Country: US (occurrence: None)
  Receive Date: 20140812
  Receipt Date: 20140812
  Transmission Date: 20150326
  Serious: Yes (Hospitalization, Other)
  Sender: FDA-Public Use
  Company Number: None

PATIENT
  Age: 80 Year
  Sex: Female
  Weight: 61.4 kg

DRUGS (13)
  1. HYDROCORTISONE. [Concomitant]
     Active Substance: HYDROCORTISONE
  2. LISINOPRIL. [Concomitant]
     Active Substance: LISINOPRIL
  3. CERTRIZINE [Concomitant]
  4. SERTRALINE HCL [Concomitant]
     Active Substance: SERTRALINE HYDROCHLORIDE
  5. DUCOSATE SODIUM [Concomitant]
  6. RIFAMPIN. [Suspect]
     Active Substance: RIFAMPIN
     Dosage: 9/23-10/8+11/6-12/3;#3 9/23-10/8?600MG # 3 1500MG DAILY PO
     Route: 048
  7. PYRAZINAMIDE. [Suspect]
     Active Substance: PYRAZINAMIDE
  8. LORAZEPAM. [Concomitant]
     Active Substance: LORAZEPAM
  9. AUGMENTIN [Concomitant]
     Active Substance: AMOXICILLIN\CLAVULANATE POTASSIUM
  10. ISONIAZID. [Suspect]
     Active Substance: ISONIAZID
     Indication: PULMONARY TUBERCULOSIS
     Route: 048
     Dates: start: 20130923, end: 20131008
  11. LANTUS INSULIN [Concomitant]
  12. ZOLOFT [Concomitant]
     Active Substance: SERTRALINE HYDROCHLORIDE
  13. IRON [Concomitant]
     Active Substance: IRON

REACTIONS (4)
  - Pneumonia aspiration [None]
  - Aspartate aminotransferase increased [None]
  - Asthenia [None]
  - Alanine aminotransferase increased [None]

NARRATIVE: CASE EVENT DATE: 20130930
